FAERS Safety Report 8045916-2 (Version None)
Quarter: 2012Q1

REPORT INFORMATION
  Report Type: 
  Country: None (occurrence: None)
  Receive Date: 20120113
  Receipt Date: 20111231
  Transmission Date: 20120608
  Serious: Yes (Death)
  Sender: FDA-Public Use
  Company Number: US-VIIV HEALTHCARE LIMITED-B0765118A

PATIENT
  Age: 41 Year
  Sex: Male
  Weight: 77.7 kg

DRUGS (13)
  1. MARAVIROC [Suspect]
     Indication: HIV INFECTION
     Dosage: 300MG TWICE PER DAY
     Route: 048
     Dates: start: 20101007, end: 20111024
  2. LOMOTIL [Concomitant]
     Dates: start: 20100101
  3. TRUVADA [Concomitant]
     Indication: HIV INFECTION
     Dosage: 1TAB PER DAY
     Dates: start: 20101007, end: 20111024
  4. CORTISPORIN [Concomitant]
     Dates: start: 20101007
  5. VITAMIN D2 [Concomitant]
     Dates: start: 20111021
  6. OXYCODONE HCL [Concomitant]
     Dates: start: 20100913
  7. FIORICET [Concomitant]
     Dates: start: 20110922
  8. LEXAPRO [Concomitant]
     Dates: start: 20070215
  9. CLONAZEPAM [Concomitant]
     Dates: start: 20070410
  10. TOPAMAX [Concomitant]
     Dates: start: 20111021
  11. LORATADINE [Concomitant]
     Dates: start: 20110922
  12. AMITRIPTYLINE HCL [Concomitant]
     Dates: start: 20101007
  13. ALPRAZOLAM [Concomitant]
     Dates: start: 20070313

REACTIONS (2)
  - TOXICITY TO VARIOUS AGENTS [None]
  - ACCIDENTAL EXPOSURE [None]
